FAERS Safety Report 13898642 (Version 1)
Quarter: 2017Q3

REPORT INFORMATION
  Report Type: Spontaneous
  Country: US (occurrence: None)
  Receive Date: 20170817
  Receipt Date: 20170817
  Transmission Date: 20171127
  Serious: Yes (Life-Threatening, Hospitalization)
  Sender: FDA-Public Use
  Company Number: None

PATIENT
  Age: 56 Year
  Sex: Male
  Weight: 118.84 kg

DRUGS (1)
  1. LOSARTAN. [Suspect]
     Active Substance: LOSARTAN
     Indication: HYPERTENSION
     Dosage: 100MG AM PO
     Route: 048
     Dates: start: 20140902, end: 20170609

REACTIONS (3)
  - Respiratory distress [None]
  - Angioedema [None]
  - Rash [None]

NARRATIVE: CASE EVENT DATE: 20170609
